FAERS Safety Report 14047841 (Version 3)
Quarter: 2017Q4

REPORT INFORMATION
  Report Type: Spontaneous
  Country: GB (occurrence: GB)
  Receive Date: 20171005
  Receipt Date: 20171114
  Transmission Date: 20180321
  Serious: Yes (Hospitalization)
  Sender: FDA-Public Use
  Company Number: GB-B.I. PHARMACEUTICALS,INC./RIDGEFIELD-2017-BI-054122

PATIENT
  Age: 73 Year
  Sex: Male

DRUGS (7)
  1. BUMETANIDE. [Concomitant]
     Active Substance: BUMETANIDE
     Indication: PRODUCT USED FOR UNKNOWN INDICATION
     Route: 065
     Dates: start: 20170809, end: 20170816
  2. SALBUTAMOL [Concomitant]
     Active Substance: ALBUTEROL
     Indication: PRODUCT USED FOR UNKNOWN INDICATION
     Route: 065
     Dates: start: 20121224
  3. FORMOTEROL [Concomitant]
     Active Substance: FORMOTEROL
     Indication: PRODUCT USED FOR UNKNOWN INDICATION
     Route: 065
  4. MST CONTINUS [Suspect]
     Active Substance: MORPHINE SULFATE
     Indication: BACK PAIN
     Route: 065
  5. FLUTICASONE. [Concomitant]
     Active Substance: FLUTICASONE
     Indication: PRODUCT USED FOR UNKNOWN INDICATION
     Route: 065
     Dates: start: 20110318
  6. TAMSULOSINA [Suspect]
     Active Substance: TAMSULOSIN HYDROCHLORIDE
     Indication: PRODUCT USED FOR UNKNOWN INDICATION
     Dosage: DOSE AND DAILY DOSE: 400 FEG
     Route: 065
     Dates: start: 20110805
  7. MST CONTINUS [Suspect]
     Active Substance: MORPHINE SULFATE
     Indication: PRODUCT USED FOR UNKNOWN INDICATION
     Route: 065
     Dates: start: 20170710

REACTIONS (2)
  - Asthma [Recovered/Resolved]
  - Fall [Recovered/Resolved]

NARRATIVE: CASE EVENT DATE: 20170815
